APPROVED DRUG PRODUCT: CHLORAMPHENICOL
Active Ingredient: CHLORAMPHENICOL SODIUM SUCCINATE
Strength: EQ 1GM BASE/VIAL
Dosage Form/Route: INJECTABLE;INJECTION
Application: A062406 | Product #001
Applicant: ELKINS SINN DIV AH ROBINS CO INC
Approved: Nov 9, 1982 | RLD: No | RS: No | Type: DISCN